FAERS Safety Report 18222249 (Version 1)
Quarter: 2020Q3

REPORT INFORMATION
  Report Type: Spontaneous
  Country: US (occurrence: US)
  Receive Date: 20200902
  Receipt Date: 20200902
  Transmission Date: 20201103
  Serious: No
  Sender: FDA-Public Use
  Company Number: US-ASTRAZENECA-2008BM15378

PATIENT
  Sex: Male

DRUGS (13)
  1. FASENRA [Suspect]
     Active Substance: BENRALIZUMAB
     Indication: TYPE 2 DIABETES MELLITUS
     Dosage: 10 ??G, QD
     Route: 058
     Dates: start: 200810
  2. BYETTA [Suspect]
     Active Substance: EXENATIDE
     Indication: TYPE 2 DIABETES MELLITUS
     Dosage: 5 ??G, BID
     Route: 058
     Dates: start: 200506, end: 200507
  3. BYETTA [Suspect]
     Active Substance: EXENATIDE
     Indication: TYPE 2 DIABETES MELLITUS
     Dosage: 10 ??G, BID
     Route: 058
     Dates: start: 200507, end: 200810
  4. FASENRA [Suspect]
     Active Substance: BENRALIZUMAB
     Indication: TYPE 2 DIABETES MELLITUS
     Dosage: 10 ??G, BID
     Route: 058
     Dates: start: 200507, end: 200810
  5. EXENATIDE 10MCG PEN, DISPOSABLE DEVICE [Concomitant]
     Active Substance: EXENATIDE
  6. FASENRA [Suspect]
     Active Substance: BENRALIZUMAB
     Indication: TYPE 2 DIABETES MELLITUS
     Dosage: 5 ??G, BID
     Route: 058
     Dates: start: 200506, end: 200507
  7. BYETTA [Suspect]
     Active Substance: EXENATIDE
     Indication: TYPE 2 DIABETES MELLITUS
     Dosage: 5 ??G, QD
     Route: 058
     Dates: start: 200810
  8. EXENATIDE 5MCG PEN, DISPOSABLE DEVICE [Suspect]
     Active Substance: EXENATIDE
     Route: 058
  9. EXENATIDE 10MCG PEN, DISPOSABLE DEVICE [Concomitant]
     Active Substance: EXENATIDE
  10. ACTOS [Concomitant]
     Active Substance: PIOGLITAZONE HYDROCHLORIDE
     Indication: TYPE 2 DIABETES MELLITUS
     Dosage: UNK
  11. GLIMEPIRIDE. [Concomitant]
     Active Substance: GLIMEPIRIDE
     Indication: TYPE 2 DIABETES MELLITUS
     Dosage: UNK
  12. BYETTA [Suspect]
     Active Substance: EXENATIDE
     Indication: TYPE 2 DIABETES MELLITUS
     Dosage: 10 ??G, QD
     Route: 058
     Dates: start: 200810
  13. FASENRA [Suspect]
     Active Substance: BENRALIZUMAB
     Indication: TYPE 2 DIABETES MELLITUS
     Dosage: 5 ??G, QD
     Route: 058
     Dates: start: 200810

REACTIONS (5)
  - Blood glucose increased [Not Recovered/Not Resolved]
  - Blood glucose decreased [Unknown]
  - Incorrect dose administered [Not Recovered/Not Resolved]
  - Tremor [Unknown]
  - Device leakage [Unknown]

NARRATIVE: CASE EVENT DATE: 200810
